FAERS Safety Report 6011193-7 (Version None)
Quarter: 2008Q4

REPORT INFORMATION
  Report Type: 
  Country: None (occurrence: None)
  Receive Date: 20081218
  Receipt Date: 20081215
  Transmission Date: 20090506
  Serious: Yes (Life-Threatening, Hospitalization)
  Sender: FDA-Public Use
  Company Number: JO-MERCK-0812USA02831

PATIENT
  Sex: Female
  Weight: 80 kg

DRUGS (2)
  1. FOSAMAX PLUS D [Suspect]
     Indication: OSTEOPOROSIS
     Route: 048
  2. CALCIUM (UNSPECIFIED) [Concomitant]
     Route: 048

REACTIONS (4)
  - FATIGUE [None]
  - PALLOR [None]
  - TACHYCARDIA [None]
  - VOMITING [None]
